FAERS Safety Report 15688292 (Version 2)
Quarter: 2018Q4

REPORT INFORMATION
  Report Type: Spontaneous
  Country: KR (occurrence: KR)
  Receive Date: 20181205
  Receipt Date: 20181226
  Transmission Date: 20190205
  Serious: Yes (Hospitalization, Other)
  Sender: FDA-Public Use
  Company Number: KR-009507513-1811KOR012424

PATIENT
  Sex: Female

DRUGS (4)
  1. KEYTRUDA [Suspect]
     Active Substance: PEMBROLIZUMAB
     Dosage: UNK, EVERY 3 WEEKS
     Dates: start: 20181026, end: 20181026
  2. KEYTRUDA [Suspect]
     Active Substance: PEMBROLIZUMAB
     Dosage: 2 DF QD (ALSO REPORTED EVERY 3 WEEKS)
     Dates: start: 20181115
  3. KEYTRUDA [Suspect]
     Active Substance: PEMBROLIZUMAB
     Indication: ENDOMETRIAL CANCER
     Dosage: UNK, EVERY 3 WEEKS
     Dates: start: 20181004, end: 20181004
  4. KEYTRUDA [Suspect]
     Active Substance: PEMBROLIZUMAB
     Dosage: 2 DF QD
     Dates: start: 20181210

REACTIONS (2)
  - Product use in unapproved indication [Unknown]
  - Radiotherapy [Unknown]

NARRATIVE: CASE EVENT DATE: 201810
